FAERS Safety Report 5202101-7 (Version None)
Quarter: 2007Q1

REPORT INFORMATION
  Report Type: 
  Country: None (occurrence: None)
  Receive Date: 20070103
  Receipt Date: 20061220
  Transmission Date: 20070707
  Serious: Yes (Other)
  Sender: FDA-Public Use
  Company Number: GXKR2006GB08338

PATIENT
  Age: 85 Year
  Sex: Female

DRUGS (8)
  1. METOCLOPRAMIDE [Suspect]
     Indication: NAUSEA
     Dosage: 10 MG, TID, ORAL
     Route: 048
     Dates: start: 20061114, end: 20061118
  2. ASPIRIN [Concomitant]
  3. BECLOMETHASONE DIPROPIONATE [Concomitant]
  4. BENDROFLUMETHIAZIDE (BENDROFLUMETHIAZIDE) [Concomitant]
  5. IPRATROPIUM BROMIDE [Concomitant]
  6. SALBUTAMOL (SALBUTAMOL) [Concomitant]
  7. SALMETEROL (SALMETEROL) [Concomitant]
  8. SIMVASTATIN [Concomitant]

REACTIONS (1)
  - CONVULSION [None]
